FAERS Safety Report 9422855 (Version 1)
Quarter: 2013Q3

REPORT INFORMATION
  Report Type: Spontaneous
  Country: US (occurrence: None)
  Receive Date: 20130724
  Receipt Date: 20130724
  Transmission Date: 20140515
  Serious: Yes (Disabling, Other)
  Sender: FDA-Public Use
  Company Number: COL_14018_2013

PATIENT
  Sex: Female

DRUGS (2)
  1. COLGATE OPTIC WHITE SPARKLING FRESH MINT MOUTHWASH [Suspect]
     Indication: PRODUCT USED FOR UNKNOWN INDICATION
     Route: 048
  2. COLGATE OPTIC WHOTE TOOTHPASTE [Suspect]
     Indication: DENTAL CARIES
     Route: 048

REACTIONS (18)
  - Malaise [None]
  - Oral discomfort [None]
  - Skin burning sensation [None]
  - Oral mucosal exfoliation [None]
  - Purulence [None]
  - Glossodynia [None]
  - Dry mouth [None]
  - Swollen tongue [None]
  - Hypertrophy of tongue papillae [None]
  - Oropharyngeal pain [None]
  - Dysphagia [None]
  - Hypophagia [None]
  - Chemical injury [None]
  - Impaired work ability [None]
  - Weight decreased [None]
  - Tongue discolouration [None]
  - Tongue discolouration [None]
  - Drug ineffective [None]
